FAERS Safety Report 6276101-2 (Version None)
Quarter: 2009Q3

REPORT INFORMATION
  Report Type: 
  Country: None (occurrence: None)
  Receive Date: 20090717
  Receipt Date: 20090717
  Transmission Date: 20100115
  Serious: No
  Sender: FDA-Public Use
  Company Number: None

PATIENT
  Age: 56 Year
  Sex: Female
  Weight: 89.3586 kg

DRUGS (1)
  1. DEPO-PROVERA [Suspect]
     Indication: UTERINE LEIOMYOMA
     Dosage: 150 MG INJECTION BY DOCTOR EVERY 90 DAYS

REACTIONS (9)
  - COUGH [None]
  - DIZZINESS [None]
  - FATIGUE [None]
  - FEAR [None]
  - HAEMOPTYSIS [None]
  - HEADACHE [None]
  - MUSCLE SPASMS [None]
  - SYNCOPE [None]
  - VAGINAL DISCHARGE [None]
